FAERS Safety Report 18502800 (Version 1)
Quarter: 2020Q4

REPORT INFORMATION
  Report Type: Spontaneous
  Country: DE (occurrence: DE)
  Receive Date: 20201113
  Receipt Date: 20201113
  Transmission Date: 20210114
  Serious: Yes (Death)
  Sender: FDA-Public Use
  Company Number: DE-ASTRAZENECA-2020SF46678

PATIENT
  Age: 52 Year
  Sex: Female

DRUGS (3)
  1. DENOSUMAB [Suspect]
     Active Substance: DENOSUMAB
     Indication: BREAST CANCER METASTATIC
     Dosage: 120 MG (EVERY FOUR WEEKS)
     Route: 065
     Dates: start: 201910, end: 2019
  2. FASLODEX [Suspect]
     Active Substance: FULVESTRANT
     Indication: BREAST CANCER METASTATIC
     Dosage: 500 MG (2 X 250 MG EVERY FOUR WEEKS)
     Route: 030
     Dates: start: 201910, end: 2019
  3. PALBOCICLIB [Suspect]
     Active Substance: PALBOCICLIB
     Indication: BREAST CANCER METASTATIC
     Dosage: 125 MG, CYCLIC (D1-21 EVERY FOUR WEEKS)
     Route: 048
     Dates: start: 201910, end: 2019

REACTIONS (3)
  - Alanine aminotransferase increased [Unknown]
  - Aspartate aminotransferase increased [Unknown]
  - Neoplasm progression [Fatal]

NARRATIVE: CASE EVENT DATE: 201911
